FAERS Safety Report 9787645 (Version 1)
Quarter: 2013Q4

REPORT INFORMATION
  Report Type: Spontaneous
  Country: BR (occurrence: BR)
  Receive Date: 20131230
  Receipt Date: 20131230
  Transmission Date: 20140711
  Serious: Yes (Hospitalization, Other)
  Sender: FDA-Public Use
  Company Number: BR-JNJFOC-20131211935

PATIENT
  Sex: Male

DRUGS (2)
  1. ZYTIGA [Suspect]
     Indication: PRODUCT USED FOR UNKNOWN INDICATION
     Route: 048
     Dates: start: 2012
  2. MORPHINE [Concomitant]
     Indication: PAIN
     Route: 065

REACTIONS (2)
  - Renal failure [Recovering/Resolving]
  - Pain [Unknown]
